FAERS Safety Report 21483333 (Version 1)
Quarter: 2022Q4

REPORT INFORMATION
  Report Type: Spontaneous
  Country: US (occurrence: US)
  Receive Date: 20221020
  Receipt Date: 20221020
  Transmission Date: 20230113
  Serious: No
  Sender: FDA-Public Use
  Company Number: US-GSK-US2022AMR148139

PATIENT
  Sex: Female

DRUGS (3)
  1. BREO ELLIPTA [Suspect]
     Active Substance: FLUTICASONE FUROATE\VILANTEROL TRIFENATATE
     Indication: Product used for unknown indication
     Dosage: UNK
  2. TYVASO [Suspect]
     Active Substance: TREPROSTINIL
     Indication: Pulmonary arterial hypertension
     Dosage: 0.6 MG/ML
     Route: 055
     Dates: start: 20220203, end: 202207
  3. TYVASO [Suspect]
     Active Substance: TREPROSTINIL
     Dosage: 48 UG, QID 8 BREATHS
     Route: 055

REACTIONS (6)
  - Cough [Recovering/Resolving]
  - Throat irritation [Recovered/Resolved]
  - Dizziness [Recovered/Resolved]
  - Chest discomfort [Not Recovered/Not Resolved]
  - Chest pain [Recovering/Resolving]
  - Vomiting [Recovering/Resolving]

NARRATIVE: CASE EVENT DATE: 20220101
